FAERS Safety Report 24089556 (Version 1)
Quarter: 2024Q3

REPORT INFORMATION
  Report Type: Spontaneous
  Country: GB (occurrence: GB)
  Receive Date: 20240715
  Receipt Date: 20240715
  Transmission Date: 20241016
  Serious: Yes (Hospitalization, Disabling, Other)
  Sender: TEVA
  Company Number: None

PATIENT
  Age: 0 Day
  Sex: Male
  Weight: 1 kg

DRUGS (2)
  1. PROVIGIL [Suspect]
     Active Substance: MODAFINIL
     Indication: Central sleep apnoea syndrome
     Dosage: 400MG DAILY
     Dates: end: 202211
  2. FOLIC ACID [Concomitant]
     Active Substance: FOLIC ACID
     Indication: Vitamin supplementation

REACTIONS (11)
  - Congenital heart valve disorder [Not Recovered/Not Resolved]
  - Hydronephrosis [Not Recovered/Not Resolved]
  - Tethered cord syndrome [Recovered/Resolved with Sequelae]
  - Torticollis [Not Recovered/Not Resolved]
  - Foetal exposure during pregnancy [Unknown]
  - Hypospadias [Not Recovered/Not Resolved]
  - Plagiocephaly [Not Recovered/Not Resolved]
  - Spina bifida occulta [Recovered/Resolved with Sequelae]
  - Spinal cord operation [Not Recovered/Not Resolved]
  - Poor weight gain neonatal [Recovering/Resolving]
  - Tethered oral tissue [Recovering/Resolving]

NARRATIVE: CASE EVENT DATE: 20230622
